FAERS Safety Report 8950254 (Version 1)
Quarter: 2012Q4

REPORT INFORMATION
  Report Type: 
  Country: US (occurrence: US)
  Receive Date: 20121205
  Receipt Date: 20121205
  Transmission Date: 20130627
  Serious: Yes (Other)
  Sender: FDA-Public Use
  Company Number: CHPA2012US023902

PATIENT
  Sex: Female

DRUGS (5)
  1. EXCEDRIN MIGRAINE [Suspect]
     Indication: HEADACHE
     Dosage: Unk, Unk
     Route: 048
     Dates: start: 201010, end: 201108
  2. EXCEDRIN MIGRAINE [Suspect]
     Dosage: Unk, Unk
     Route: 048
  3. CYMBALTA [Concomitant]
     Dosage: 30 mg, UNK
  4. AMBIEN [Concomitant]
     Indication: POOR QUALITY SLEEP
  5. ATIVAN [Concomitant]

REACTIONS (3)
  - Convulsion [Unknown]
  - Anxiety [Unknown]
  - Poor quality sleep [Unknown]
